FAERS Safety Report 24040009 (Version 1)
Quarter: 2024Q3

REPORT INFORMATION
  Report Type: Spontaneous
  Country: PT (occurrence: US)
  Receive Date: 20240702
  Receipt Date: 20240702
  Transmission Date: 20241017
  Serious: Yes (Hospitalization)
  Sender: AUROBINDO
  Company Number: PT-AUROBINDO-AUR-APL-2024-031657

PATIENT
  Age: 84 Year
  Sex: Male

DRUGS (3)
  1. CLOPIDOGREL [Suspect]
     Active Substance: CLOPIDOGREL BISULFATE
     Indication: Carotid artery stenosis
     Dosage: 75 MILLIGRAM
     Route: 065
  2. ATORVASTATIN [Concomitant]
     Active Substance: ATORVASTATIN
     Indication: Product used for unknown indication
     Dosage: UNK
     Route: 065
  3. ASPIRIN [Concomitant]
     Active Substance: ASPIRIN
     Indication: Carotid artery stenosis
     Dosage: UNK
     Route: 065

REACTIONS (1)
  - Drug resistance [Unknown]
